FAERS Safety Report 5724705-5 (Version None)
Quarter: 2008Q2

REPORT INFORMATION
  Report Type: 
  Country: None (occurrence: None)
  Receive Date: 20080428
  Receipt Date: 20080411
  Transmission Date: 20081010
  Serious: Yes (Death, Hospitalization)
  Sender: FDA-Public Use
  Company Number: CAP08000118

PATIENT
  Age: 90 Year
  Sex: Female
  Weight: 25.0839 kg

DRUGS (11)
  1. ACTONEL [Suspect]
     Indication: OSTEOPOROSIS PROPHYLAXIS
     Dosage: 35 MG ONCE WEEKLY, ORAL
     Route: 048
     Dates: start: 20050907, end: 20080214
  2. COATED ASPIRIN (ACETYSALICYLIC ACID) [Concomitant]
  3. PLAVIX  /01220701/ (CLOPIDOGREL) , 75 MG [Concomitant]
  4. LIPITOR [Concomitant]
  5. CELEXA/00582602/ (CITALOPRAM HYDROBROMIDE) , 20 MG [Concomitant]
  6. MICRO K (POTASSIUM CHLORIDE) , 600 MG [Concomitant]
  7. APO TRIAZIDE (TRIAMTERENE HYDROCHLOROTHIAZIDE) [Concomitant]
  8. LOPRESSOR (METOPROLOL TARTRATE) , 50 MG [Concomitant]
  9. APO-METOPROLOL (METOPROLOL TARTRATE) , 25 MG [Concomitant]
  10. QUININE SULFATE (QUININE SULFATE) , 300 MG [Concomitant]
  11. MIRAPEX (PRAMIPEXOLE DIHYDROCHLORIDE) , 0.25 MG [Concomitant]

REACTIONS (4)
  - APHASIA [None]
  - BRAIN NEOPLASM MALIGNANT [None]
  - CEREBROVASCULAR ACCIDENT [None]
  - DYSPHAGIA [None]
